FAERS Safety Report 17681514 (Version 6)
Quarter: 2020Q3

REPORT INFORMATION
  Report Type: Spontaneous
  Country: US (occurrence: US)
  Receive Date: 20200417
  Receipt Date: 20200917
  Transmission Date: 20201102
  Serious: Yes (Disabling, Other)
  Sender: FDA-Public Use
  Company Number: NVSC2020US101750

PATIENT
  Age: 79 Year
  Sex: Male

DRUGS (18)
  1. BEOVU [Suspect]
     Active Substance: BROLUCIZUMAB-DBLL
     Indication: AGE-RELATED MACULAR DEGENERATION
     Dosage: UNK UNK, QD (LEFT EYE)
     Route: 031
     Dates: start: 20200131
  2. LUCENTIS [Suspect]
     Active Substance: RANIBIZUMAB
     Dosage: UNK
     Route: 031
     Dates: start: 20200701
  3. LUCENTIS [Suspect]
     Active Substance: RANIBIZUMAB
     Indication: AGE-RELATED MACULAR DEGENERATION
     Dosage: UNK
     Route: 031
     Dates: start: 20200519
  4. LUCENTIS [Suspect]
     Active Substance: RANIBIZUMAB
     Dosage: UNK
     Route: 031
     Dates: start: 20200812
  5. EYLEA [Suspect]
     Active Substance: AFLIBERCEPT
     Indication: SUBRETINAL FLUID
     Dosage: UNK
     Route: 065
     Dates: start: 20191218
  6. EYLEA [Suspect]
     Active Substance: AFLIBERCEPT
     Indication: AGE-RELATED MACULAR DEGENERATION
     Dosage: 47TH INJECTION
     Route: 065
     Dates: start: 20200313
  7. ACETYLSALICYLIC ACID [Concomitant]
     Active Substance: ASPIRIN
     Indication: PRODUCT USED FOR UNKNOWN INDICATION
     Dosage: 325 MG, QD
     Route: 048
  8. ROSUVASTATIN CALCIUM. [Concomitant]
     Active Substance: ROSUVASTATIN CALCIUM
     Dosage: 10 MG
     Route: 065
  9. LUCENTIS [Suspect]
     Active Substance: RANIBIZUMAB
     Dosage: UNK
     Route: 065
     Dates: start: 20200812
  10. LISINOPRIL. [Concomitant]
     Active Substance: LISINOPRIL
     Indication: PRODUCT USED FOR UNKNOWN INDICATION
     Dosage: 12.5 MG, QD
     Route: 048
  11. TRIAMCINOLONE [Concomitant]
     Active Substance: TRIAMCINOLONE
     Indication: PRODUCT USED FOR UNKNOWN INDICATION
     Dosage: UNK
     Route: 065
     Dates: start: 20200410
  12. AVASTIN [Suspect]
     Active Substance: BEVACIZUMAB
     Indication: AGE-RELATED MACULAR DEGENERATION
     Dosage: UNK
     Route: 065
  13. LUCENTIS [Suspect]
     Active Substance: RANIBIZUMAB
     Dosage: UNK
     Route: 050
     Dates: start: 20200519
  14. ROSUVASTATIN CALCIUM. [Concomitant]
     Active Substance: ROSUVASTATIN CALCIUM
     Indication: PRODUCT USED FOR UNKNOWN INDICATION
     Dosage: 1 DF, QD
     Route: 065
  15. CYANOCOBALAMIN. [Concomitant]
     Active Substance: CYANOCOBALAMIN
     Indication: PRODUCT USED FOR UNKNOWN INDICATION
     Dosage: 1 ML, QMO
     Route: 030
  16. BEOVU [Suspect]
     Active Substance: BROLUCIZUMAB-DBLL
     Indication: CHOROIDAL NEOVASCULARISATION
     Dosage: UNK
     Route: 050
     Dates: start: 20200131
  17. LUCENTIS [Suspect]
     Active Substance: RANIBIZUMAB
     Dosage: UNK
     Route: 065
     Dates: start: 20200701
  18. LISINOPRIL. [Concomitant]
     Active Substance: LISINOPRIL
     Dosage: 10 MG, QD
     Route: 048

REACTIONS (13)
  - Vitritis [Unknown]
  - Retinal artery occlusion [Not Recovered/Not Resolved]
  - Cataract [Unknown]
  - Vitreous detachment [Unknown]
  - Off label use [Unknown]
  - Visual impairment [Not Recovered/Not Resolved]
  - Neovascularisation [Unknown]
  - Blindness transient [Unknown]
  - Retinal vasculitis [Recovered/Resolved]
  - Unintentional use for unapproved indication [Unknown]
  - Vitreous floaters [Unknown]
  - Treatment failure [Unknown]
  - Visual acuity reduced [Unknown]

NARRATIVE: CASE EVENT DATE: 20200308
